FAERS Safety Report 4542983-5 (Version None)
Quarter: 2005Q1

REPORT INFORMATION
  Report Type: 
  Country: None (occurrence: None)
  Receive Date: 20050103
  Receipt Date: 20041221
  Transmission Date: 20050727
  Serious: Yes (Hospitalization)
  Sender: FDA-Public Use
  Company Number: FR-JNJFOC-20041205704

PATIENT
  Age: 65 Year
  Sex: Female
  Weight: 77 kg

DRUGS (1)
  1. INFLIXIMAB [Suspect]
     Indication: RHEUMATOID ARTHRITIS
     Route: 042

REACTIONS (5)
  - BACK PAIN [None]
  - INFUSION RELATED REACTION [None]
  - NAUSEA [None]
  - PYREXIA [None]
  - VOMITING [None]
